FAERS Safety Report 20144989 (Version 2)
Quarter: 2021Q4

REPORT INFORMATION
  Report Type: Spontaneous
  Country: US (occurrence: US)
  Receive Date: 20211203
  Receipt Date: 20211231
  Transmission Date: 20220303
  Serious: No
  Sender: FDA-Public Use
  Company Number: US-BAYER-2021A259629

PATIENT
  Age: 6 Year
  Sex: Male

DRUGS (2)
  1. CIPRO [Suspect]
     Active Substance: CIPROFLOXACIN HYDROCHLORIDE
     Indication: Infection
     Dosage: 5 ML, BID
     Route: 048
     Dates: start: 20211124, end: 20211128
  2. CIPRO [Suspect]
     Active Substance: CIPROFLOXACIN HYDROCHLORIDE
     Indication: Infection
     Dosage: UNK
     Route: 048
     Dates: start: 202105

REACTIONS (2)
  - Medication error [None]
  - Illness [None]

NARRATIVE: CASE EVENT DATE: 20211124
